FAERS Safety Report 12144073 (Version 1)
Quarter: 2016Q1

REPORT INFORMATION
  Report Type: Spontaneous
  Country: US (occurrence: US)
  Receive Date: 20160304
  Receipt Date: 20160304
  Transmission Date: 20160526
  Serious: Yes (Other)
  Sender: FDA-Public Use
  Company Number: US-BEH-2016059309

PATIENT
  Sex: Female
  Weight: 100 kg

DRUGS (29)
  1. FLAGYL [Concomitant]
     Active Substance: METRONIDAZOLE\METRONIDAZOLE HYDROCHLORIDE
  2. UROCIT-K [Concomitant]
     Active Substance: POTASSIUM CITRATE
  3. MAG - SR [Concomitant]
  4. HIZENTRA [Suspect]
     Active Substance: HUMAN IMMUNOGLOBULIN G
     Indication: IMMUNODEFICIENCY COMMON VARIABLE
     Route: 058
  5. ACETAMINOPHEN. [Concomitant]
     Active Substance: ACETAMINOPHEN
  6. DIPHENHYDRAMINE. [Concomitant]
     Active Substance: DIPHENHYDRAMINE
  7. BACTRIM [Concomitant]
     Active Substance: SULFAMETHOXAZOLE\TRIMETHOPRIM
  8. BENAZEPRIL [Concomitant]
     Active Substance: BENAZEPRIL HYDROCHLORIDE
  9. ALLOPURINOL. [Concomitant]
     Active Substance: ALLOPURINOL
  10. OMEGA 3 [Concomitant]
     Active Substance: OMEGA-3 FATTY ACIDS
  11. CARAFATE [Concomitant]
     Active Substance: SUCRALFATE
  12. EPIPEN [Concomitant]
     Active Substance: EPINEPHRINE
  13. LEVAQUIN [Concomitant]
     Active Substance: LEVOFLOXACIN
  14. GABAPENTIN. [Concomitant]
     Active Substance: GABAPENTIN
  15. ALBUTEROL SULFATE. [Concomitant]
     Active Substance: ALBUTEROL SULFATE
  16. HUMALOG [Concomitant]
     Active Substance: INSULIN LISPRO
  17. METFORMIN [Concomitant]
     Active Substance: METFORMIN HYDROCHLORIDE
  18. NOVOLOG [Concomitant]
     Active Substance: INSULIN ASPART
  19. BENZONATATE. [Concomitant]
     Active Substance: BENZONATATE
  20. VITAMIN D3 [Concomitant]
     Active Substance: CHOLECALCIFEROL
  21. CARTIA XT [Concomitant]
     Active Substance: DILTIAZEM HYDROCHLORIDE
  22. HYDROMET [Concomitant]
     Active Substance: HOMATROPINE METHYLBROMIDE\HYDROCODONE BITARTRATE
  23. OMEPRAZOLE. [Concomitant]
     Active Substance: OMEPRAZOLE
  24. BIOTIN [Concomitant]
     Active Substance: BIOTIN
  25. AZITHROMYCIN ANHYDROUS. [Concomitant]
     Active Substance: AZITHROMYCIN ANHYDROUS
  26. LIDOCAINE/PRILOCAINE [Concomitant]
  27. VENTOLIN [Concomitant]
     Active Substance: ALBUTEROL SULFATE
  28. LIPITOR [Concomitant]
     Active Substance: ATORVASTATIN CALCIUM
  29. CETIRIZINE [Concomitant]
     Active Substance: CETIRIZINE HYDROCHLORIDE

REACTIONS (1)
  - Gastroenteritis paracolon bacillus [Unknown]
